FAERS Safety Report 7451384-1 (Version None)
Quarter: 2011Q2

REPORT INFORMATION
  Report Type: 
  Country: None (occurrence: None)
  Receive Date: 20110502
  Receipt Date: 20110421
  Transmission Date: 20111010
  Serious: No
  Sender: FDA-Public Use
  Company Number: US-ALEXION-A201100343

PATIENT
  Sex: Male

DRUGS (5)
  1. DEPAKOTE [Concomitant]
     Indication: CONVULSION
     Dosage: 500 MG, QD
  2. METHYLIN [Concomitant]
     Indication: ATTENTION DEFICIT/HYPERACTIVITY DISORDER
     Dosage: 10 MG, BID
  3. MELATONIN [Concomitant]
     Indication: INSOMNIA
     Dosage: 6 MG, QD
  4. ATIVAN [Concomitant]
     Indication: ANXIETY
     Dosage: 1 MG, PRN
  5. SOLIRIS [Suspect]
     Indication: PAROXYSMAL NOCTURNAL HAEMOGLOBINURIA
     Dosage: 900 MG, Q2W
     Route: 042
     Dates: start: 20090101

REACTIONS (2)
  - LOWER RESPIRATORY TRACT INFECTION [None]
  - CHROMATURIA [None]
